FAERS Safety Report 6596812-9 (Version None)
Quarter: 2010Q1

REPORT INFORMATION
  Report Type: 
  Country: None (occurrence: None)
  Receive Date: 20100212
  Receipt Date: 20090918
  Transmission Date: 20100710
  Serious: No
  Sender: FDA-Public Use
  Company Number: 2009-00626

PATIENT
  Age: 39 Year
  Sex: Female
  Weight: 61.2356 kg

DRUGS (1)
  1. ZICAM EXTREME CONGESTION NASAL GEL [Suspect]
     Dosage: QD
     Dates: start: 20090918, end: 20090918

REACTIONS (2)
  - AGEUSIA [None]
  - ANOSMIA [None]
